FAERS Safety Report 6169368-2 (Version None)
Quarter: 2009Q2

REPORT INFORMATION
  Report Type: 
  Country: None (occurrence: None)
  Receive Date: 20090424
  Receipt Date: 20090320
  Transmission Date: 20091009
  Serious: No
  Sender: FDA-Public Use
  Company Number: PYLE-2009-006

PATIENT
  Age: 59 Year
  Sex: Female

DRUGS (3)
  1. PYLERA [Suspect]
     Indication: HELICOBACTER INFECTION
     Dosage: PO
     Route: 048
     Dates: start: 20090225
  2. SYNTHROID [Concomitant]
  3. PROTONIX (PANTOPRAZOLE SODIUM; ONGOING FOR 1 YEAR) [Concomitant]

REACTIONS (3)
  - MUSCLE SPASMS [None]
  - MUSCULAR WEAKNESS [None]
  - PARAESTHESIA [None]
